FAERS Safety Report 4377712-1 (Version None)
Quarter: 2004Q2

REPORT INFORMATION
  Report Type: 
  Country: None (occurrence: None)
  Receive Date: 20040608
  Receipt Date: 20040524
  Transmission Date: 20050107
  Serious: Yes (Hospitalization)
  Sender: FDA-Public Use
  Company Number: 234186

PATIENT
  Age: 69 Year
  Sex: Male

DRUGS (5)
  1. INSULATARD PENFILL (INSULIN HUMAN) SUSPENSION FOR INJECTION, 100IU/ML [Suspect]
     Indication: DIABETES MELLITUS
     Dosage: 16 IU, QD, SUBCUTANEOUS
     Route: 058
     Dates: start: 19950101
  2. PYOSTACINE (PRISTINAMYCIN) [Concomitant]
  3. NICARDIPINE HCL [Concomitant]
  4. LASIX [Concomitant]
  5. BRICANYL [Concomitant]

REACTIONS (11)
  - CHRONIC OBSTRUCTIVE AIRWAYS DISEASE [None]
  - DERMATITIS EXFOLIATIVE [None]
  - ECZEMA INFECTED [None]
  - EXANTHEM [None]
  - HYPERSENSITIVITY [None]
  - PSORIASIS [None]
  - PURPURA [None]
  - RASH PUSTULAR [None]
  - RIGHT VENTRICULAR FAILURE [None]
  - SCAB [None]
  - SKIN LESION [None]
